FAERS Safety Report 24285229 (Version 1)
Quarter: 2024Q3

REPORT INFORMATION
  Report Type: Spontaneous
  Country: FR (occurrence: FR)
  Receive Date: 20240905
  Receipt Date: 20240905
  Transmission Date: 20241016
  Serious: Yes (Hospitalization)
  Sender: RANBAXY
  Company Number: FR-AFSSAPS-TO2024001135

PATIENT
  Age: 77 Year
  Sex: Male
  Weight: 79 kg

DRUGS (2)
  1. CLOPIDOGREL [Suspect]
     Active Substance: CLOPIDOGREL BISULFATE
     Indication: Product used for unknown indication
     Dosage: 75 MILLIGRAM, DAILY
     Route: 048
     Dates: start: 2001, end: 20240404
  2. TADALAFIL [Suspect]
     Active Substance: TADALAFIL
     Indication: Prostatomegaly
     Dosage: 5 MILLIGRAM, DAILY
     Route: 048
     Dates: start: 201407, end: 20240404

REACTIONS (2)
  - Cerebral haematoma [Recovering/Resolving]
  - Cerebrovascular accident [Recovering/Resolving]

NARRATIVE: CASE EVENT DATE: 20240404
